FAERS Safety Report 17968311 (Version 1)
Quarter: 2020Q3

REPORT INFORMATION
  Report Type: Spontaneous
  Country: US (occurrence: US)
  Receive Date: 20200701
  Receipt Date: 20200701
  Transmission Date: 20201103
  Serious: Yes (Other)
  Sender: FDA-Public Use
  Company Number: US-ACTELION-A-NJ2020-206486

PATIENT
  Age: 60 Year
  Sex: Female

DRUGS (1)
  1. OPSUMIT [Suspect]
     Active Substance: MACITENTAN
     Indication: PULMONARY ARTERIAL HYPERTENSION
     Dosage: 10 MG, QD
     Route: 048
     Dates: start: 20190822

REACTIONS (5)
  - Hair growth abnormal [Not Recovered/Not Resolved]
  - Concussion [Not Recovered/Not Resolved]
  - Product dose omission issue [Unknown]
  - Fall [Not Recovered/Not Resolved]
  - Skull fracture [Not Recovered/Not Resolved]

NARRATIVE: CASE EVENT DATE: 202006
